FAERS Safety Report 24386756 (Version 1)
Quarter: 2024Q4

REPORT INFORMATION
  Report Type: Spontaneous
  Country: FR (occurrence: FR)
  Receive Date: 20241002
  Receipt Date: 20241002
  Transmission Date: 20250114
  Serious: Yes (Other)
  Sender: ROCHE
  Company Number: FR-ROCHE-10000034210

PATIENT
  Age: 61 Year
  Sex: Female

DRUGS (3)
  1. VABYSMO [Suspect]
     Active Substance: FARICIMAB-SVOA
     Indication: Age-related macular degeneration
     Route: 050
     Dates: start: 20240314, end: 20240530
  2. VABYSMO [Suspect]
     Active Substance: FARICIMAB-SVOA
     Route: 050
  3. EYLEA [Concomitant]
     Active Substance: AFLIBERCEPT
     Indication: Age-related macular degeneration
     Dosage: 21 IVT WITHOUT ADVERSE EVENT OCCURRENCE
     Route: 050
     Dates: start: 20201224

REACTIONS (5)
  - Iridocyclitis [Unknown]
  - Ocular hypertension [Unknown]
  - Retinal vasculitis [Unknown]
  - Vitritis [Unknown]
  - Papillitis [Unknown]

NARRATIVE: CASE EVENT DATE: 20240613
